FAERS Safety Report 5149486-8 (Version None)
Quarter: 2006Q4

REPORT INFORMATION
  Report Type: 
  Country: None (occurrence: None)
  Receive Date: 20061113
  Receipt Date: 20060207
  Transmission Date: 20070319
  Serious: No
  Sender: FDA-Public Use
  Company Number: 435693

PATIENT
  Sex: Female

DRUGS (2)
  1. COREG [Suspect]
     Indication: DRUG USE FOR UNKNOWN INDICATION
     Route: 048
  2. LOTION [Concomitant]
     Route: 061

REACTIONS (1)
  - RASH [None]
